FAERS Safety Report 9287211 (Version 3)
Quarter: 2013Q2

REPORT INFORMATION
  Report Type: Spontaneous
  Country: CH (occurrence: CH)
  Receive Date: 20130513
  Receipt Date: 20130603
  Transmission Date: 20140414
  Serious: Yes (Hospitalization)
  Sender: FDA-Public Use
  Company Number: CH-GILEAD-2013-0074888

PATIENT
  Age: 64 Year
  Sex: Male

DRUGS (5)
  1. EVIPLERA [Suspect]
     Indication: HIV INFECTION
     Dosage: UNK
     Route: 048
     Dates: start: 20130427, end: 20130429
  2. DORMICUM                           /00634102/ [Concomitant]
     Indication: INSOMNIA
     Dosage: UNK
  3. PRIMPERAN [Concomitant]
     Dosage: UNK
     Dates: start: 20130429, end: 20130429
  4. BELOC-ZOC COMP [Concomitant]
  5. HALOPERIDOL [Concomitant]
     Dosage: UNK
     Dates: start: 20130430

REACTIONS (7)
  - Confusional state [Recovered/Resolved]
  - Delirium [Recovered/Resolved]
  - Disorientation [Recovered/Resolved]
  - Anxiety [Recovered/Resolved]
  - Rash [Recovered/Resolved]
  - Nausea [Unknown]
  - Vomiting [Unknown]
